FAERS Safety Report 17312587 (Version 1)
Quarter: 2020Q1

REPORT INFORMATION
  Report Type: Spontaneous
  Country: US (occurrence: US)
  Receive Date: 20200123
  Receipt Date: 20200123
  Transmission Date: 20200409
  Serious: Yes (Hospitalization)
  Sender: FDA-Public Use
  Company Number: US-NOVOPROD-707547

PATIENT
  Age: 72 Year
  Sex: Female

DRUGS (2)
  1. LEVEMIR [Suspect]
     Active Substance: INSULIN DETEMIR
     Indication: TYPE 2 DIABETES MELLITUS
     Dosage: 35 IU, QD (CHANGED FROM QPM TO TAKING IN THE AM)
     Route: 058
     Dates: start: 20151209
  2. NOVOLOG [Suspect]
     Active Substance: INSULIN ASPART
     Indication: TYPE 2 DIABETES MELLITUS
     Dosage: 12 UNITS BEFORE MEALS 3 TIMES A DAY AND SLIDING SCALE
     Route: 058
     Dates: start: 201512

REACTIONS (5)
  - Vision blurred [Recovered/Resolved]
  - Product administration error [Unknown]
  - Blood glucose increased [Recovered/Resolved]
  - Blood glucose increased [Unknown]
  - Confusional state [Recovered/Resolved]

NARRATIVE: CASE EVENT DATE: 201911
